FAERS Safety Report 5062947-5 (Version None)
Quarter: 2006Q3

REPORT INFORMATION
  Report Type: 
  Country: None (occurrence: None)
  Receive Date: 20060727
  Receipt Date: 20060718
  Transmission Date: 20061208
  Serious: Yes (Other)
  Sender: FDA-Public Use
  Company Number: US-JNJFOC-20060503287

PATIENT
  Sex: Female
  Weight: 79.83 kg

DRUGS (4)
  1. REMICADE [Suspect]
     Route: 042
  2. REMICADE [Suspect]
     Route: 042
  3. REMICADE [Suspect]
     Indication: RHEUMATOID ARTHRITIS
     Route: 042
  4. AZULFADINE [Suspect]
     Indication: RHEUMATOID ARTHRITIS

REACTIONS (8)
  - ANAEMIA [None]
  - CATARACT OPERATION [None]
  - CONSTIPATION [None]
  - CYSTITIS [None]
  - DYSKINESIA [None]
  - GLAUCOMA [None]
  - INFECTION [None]
  - RASH [None]
